FAERS Safety Report 5201801-2 (Version None)
Quarter: 2006Q4

REPORT INFORMATION
  Report Type: 
  Country: None (occurrence: None)
  Receive Date: 20061002
  Receipt Date: 20051114
  Transmission Date: 20070319
  Serious: Yes (Hospitalization)
  Sender: FDA-Public Use
  Company Number: TPA2005A01487

PATIENT
  Age: 77 Year
  Sex: Female
  Weight: 93.441 kg

DRUGS (12)
  1. ACTOS [Suspect]
     Indication: DIABETES MELLITUS NON-INSULIN-DEPENDENT
     Dosage: 15 MG, 3 IN 1 D, PER ORAL
     Route: 048
     Dates: start: 20000101, end: 20050526
  2. INSULIN N(INSULIN) (INJECTION) [Concomitant]
  3. INSULIN R(INSULIN) (INJECTION) [Concomitant]
  4. GLIPIZIDE [Concomitant]
  5. LOVASTATIN(LOVASTATIN) (80 MILLIGRAM) [Concomitant]
  6. CATAPRES [Concomitant]
  7. APRESOLINE(HYDRALAZINE HYDROCHLORIDE) (25 MILLIGRAM) [Concomitant]
  8. PRILOSEC [Concomitant]
  9. TAPAZOLE(THIAMAZOLE) (5 MILLIGRAM) [Concomitant]
  10. TENORMIN (ATENOLOL) (25 MILLIGRAM) [Concomitant]
  11. BABY ASPIRIN(ACETYLSALICYLIC ACID) (81 MILLIGRAM) [Concomitant]
  12. NITRO-BID(GLYCERYL TRINITRATE) (26.5 MILLIGRAM) [Concomitant]

REACTIONS (6)
  - ANAEMIA [None]
  - CARDIAC FAILURE CONGESTIVE [None]
  - DYSPNOEA [None]
  - FLUID RETENTION [None]
  - VOMITING [None]
  - WEIGHT INCREASED [None]
